FAERS Safety Report 17159438 (Version 1)
Quarter: 2019Q4

REPORT INFORMATION
  Report Type: Spontaneous
  Country: US (occurrence: US)
  Receive Date: 20191216
  Receipt Date: 20191216
  Transmission Date: 20200122
  Serious: No
  Sender: FDA-Public Use
  Company Number: US-GLAXOSMITHKLINE-US2019222956

PATIENT
  Age: 68 Year
  Sex: Female

DRUGS (2)
  1. FLONASE SENSIMIST ALLERGY RELIEF [Suspect]
     Active Substance: FLUTICASONE FUROATE
     Indication: ASTHMA
  2. FLONASE SENSIMIST ALLERGY RELIEF [Suspect]
     Active Substance: FLUTICASONE FUROATE
     Indication: HYPERSENSITIVITY
     Dosage: UNK
     Route: 065
     Dates: start: 20190921, end: 20191109

REACTIONS (8)
  - Adverse drug reaction [Recovering/Resolving]
  - Drug ineffective for unapproved indication [Unknown]
  - Therapeutic product effect variable [Unknown]
  - Epistaxis [Unknown]
  - Product use in unapproved indication [Unknown]
  - Nasal crusting [Unknown]
  - Off label use [Unknown]
  - Mucosal exfoliation [Unknown]

NARRATIVE: CASE EVENT DATE: 20190921
